FAERS Safety Report 4579851-9 (Version None)
Quarter: 2005Q1

REPORT INFORMATION
  Report Type: 
  Country: None (occurrence: None)
  Receive Date: 20050210
  Receipt Date: 20050210
  Transmission Date: 20050727
  Serious: Yes (Other)
  Sender: FDA-Public Use
  Company Number: None

PATIENT
  Age: 20 Year
  Sex: Male
  Weight: 54.4316 kg

DRUGS (2)
  1. CELEXA [Suspect]
     Indication: AUTISM
     Dosage: 10 MG   1 X A DY
  2. CELEXA [Suspect]
     Indication: CEREBRAL DISORDER
     Dosage: 10 MG   1 X A DY

REACTIONS (6)
  - AGGRESSION [None]
  - INSOMNIA [None]
  - NIGHTMARE [None]
  - ORAL INTAKE REDUCED [None]
  - PHARMACEUTICAL PRODUCT COMPLAINT [None]
  - SCRATCH [None]
